FAERS Safety Report 25258912 (Version 4)
Quarter: 2025Q2

REPORT INFORMATION
  Report Type: Spontaneous
  Country: DK (occurrence: DK)
  Receive Date: 20250501
  Receipt Date: 20250525
  Transmission Date: 20250716
  Serious: Yes (Life-Threatening, Hospitalization, Other)
  Sender: AUROBINDO
  Company Number: DK-EMA-20111114-mkevhumanwt-123038174

PATIENT
  Age: 62 Year
  Sex: Male

DRUGS (19)
  1. FLUCONAZOLE [Suspect]
     Active Substance: FLUCONAZOLE
     Indication: Pyrexia
     Dosage: 200 MILLIGRAM, ONCE A DAY (200 MG, 1X PER DAY)
     Route: 065
     Dates: start: 20080429, end: 20080519
  2. LANSOPRAZOLE [Suspect]
     Active Substance: LANSOPRAZOLE
     Indication: Gastric ulcer
     Dosage: 60 MILLIGRAM, ONCE A DAY (30 MG, 2X PER DAY)
     Route: 048
     Dates: start: 20080507, end: 20080523
  3. LANSOPRAZOLE [Suspect]
     Active Substance: LANSOPRAZOLE
     Dosage: 120 MILLIGRAM, ONCE A DAY (30 MG, 2X PER DAY)
     Route: 048
     Dates: start: 20080507, end: 20080523
  4. CIPROFLOXACIN [Suspect]
     Active Substance: CIPROFLOXACIN
     Indication: Pyrexia
     Dosage: 800 MILLIGRAM, ONCE A DAY (400 MG, 2X PER DAY)
     Route: 065
     Dates: start: 20080430, end: 20080503
  5. MEROPENEM [Suspect]
     Active Substance: MEROPENEM
     Indication: Pyrexia
     Dosage: 3000 MILLIGRAM, ONCE A DAY (1000 MG, 3X PER DAY)
     Route: 042
     Dates: start: 20080511, end: 20080516
  6. MEROPENEM [Suspect]
     Active Substance: MEROPENEM
     Dosage: 1000 MILLIGRAM, ONCE A DAY
     Route: 042
     Dates: start: 20080511, end: 20080516
  7. PANTOPRAZOLE [Suspect]
     Active Substance: PANTOPRAZOLE
     Indication: Abdominal pain
     Dosage: 40 MILLIGRAM, ONCE A DAY (40 MG, 1X PER DAY)
     Route: 048
     Dates: start: 20080428, end: 20080507
  8. PANTOPRAZOLE [Suspect]
     Active Substance: PANTOPRAZOLE
     Dosage: 40 MILLIGRAM, ONCE A DAY (40 MG, 1X PER DAY)
     Route: 048
     Dates: start: 20080527, end: 20080530
  9. PANTOPRAZOLE SODIUM [Suspect]
     Active Substance: PANTOPRAZOLE SODIUM
     Indication: Product used for unknown indication
     Dosage: 40 MILLIGRAM, ONCE A DAY (40 MG, 1X PER DAY)
     Route: 048
     Dates: start: 20080527, end: 20080530
  10. PANTOPRAZOLE SODIUM [Suspect]
     Active Substance: PANTOPRAZOLE SODIUM
     Dosage: 40 MILLIGRAM, ONCE A DAY (40 MG, 1X PER DAY)
     Route: 048
     Dates: start: 20080428, end: 20080530
  11. PANTOPRAZOLE SODIUM [Suspect]
     Active Substance: PANTOPRAZOLE SODIUM
     Dosage: 40 MILLIGRAM, ONCE A DAY (40 MG, 1X PER DAY)
     Route: 048
     Dates: start: 20080428, end: 20080507
  12. B-combin [Concomitant]
     Indication: Hypovitaminosis
     Dosage: 3 DOSAGE FORM, ONCE A DAY
     Route: 065
     Dates: start: 20080508
  13. CEFUROXIME [Concomitant]
     Active Substance: CEFUROXIME
     Indication: Pyrexia
     Dosage: 2250 MILLIGRAM, ONCE A DAY
     Route: 065
     Dates: start: 20080430, end: 20080510
  14. CEFUROXIME [Concomitant]
     Active Substance: CEFUROXIME
     Dosage: 4500 MILLIGRAM, ONCE A DAY
     Route: 065
     Dates: start: 20080428, end: 20080430
  15. ZINACEF [Concomitant]
     Active Substance: CEFUROXIME SODIUM
     Indication: Pyrexia
     Dosage: 13500 MILLIGRAM, ONCE A DAY
     Route: 030
     Dates: start: 20080428, end: 20080430
  16. ZINACEF [Concomitant]
     Active Substance: CEFUROXIME SODIUM
     Dosage: 2250 MILLIGRAM, ONCE A DAY
     Route: 030
     Dates: start: 20080430, end: 20080510
  17. THIAMINE [Concomitant]
     Active Substance: THIAMINE
     Indication: Hypovitaminosis
     Dosage: 300 MILLIGRAM, ONCE A DAY (300 MG, 1X PER DAY)
     Route: 048
     Dates: start: 20080428
  18. VITAMIN B-COMPLEX [Concomitant]
     Active Substance: DEXPANTHENOL\NIACINAMIDE\PYRIDOXINE HYDROCHLORIDE\RIBOFLAVIN 5^-PHOSPHATE SODIUM\THIAMINE HYDROCHLOR
     Indication: Hypovitaminosis
     Dosage: 3 DOSAGE FORM, ONCE A DAY (1 DF, 3X PER DAY)
     Route: 065
  19. VITAMIN B [Concomitant]
     Active Substance: VITAMIN B
     Indication: Hypovitaminosis
     Route: 065

REACTIONS (8)
  - Toxic epidermal necrolysis [Recovered/Resolved]
  - Asthenia [Unknown]
  - Rash maculo-papular [Unknown]
  - Oedema peripheral [Unknown]
  - Pain in extremity [Recovered/Resolved]
  - Paraesthesia [Recovered/Resolved]
  - Tremor [Recovered/Resolved]
  - Rash [Recovered/Resolved]

NARRATIVE: CASE EVENT DATE: 20080525
